FAERS Safety Report 5397181-2 (Version None)
Quarter: 2007Q3

REPORT INFORMATION
  Report Type: 
  Country: None (occurrence: None)
  Receive Date: 20070725
  Receipt Date: 20070716
  Transmission Date: 20080115
  Serious: Yes (Other)
  Sender: FDA-Public Use
  Company Number: CH-PFIZER INC-2007059229

PATIENT
  Sex: Female
  Weight: 92 kg

DRUGS (6)
  1. CHAMPIX [Suspect]
     Route: 048
     Dates: start: 20070412, end: 20070426
  2. ACTOS [Concomitant]
     Route: 048
  3. ISOPTIN [Concomitant]
     Route: 048
  4. ALL OTHER THERAPEUTIC PRODUCTS [Concomitant]
     Route: 048
  5. ASPIRIN [Concomitant]
     Route: 048
  6. EZETIMIBE/SIMVASTATIN [Concomitant]
     Dosage: TEXT:10/20 MG
     Route: 048

REACTIONS (1)
  - SEROTONIN SYNDROME [None]
